FAERS Safety Report 5467099-5 (Version None)
Quarter: 2007Q3

REPORT INFORMATION
  Report Type: 
  Country: None (occurrence: None)
  Receive Date: 20070921
  Receipt Date: 20070921
  Transmission Date: 20080115
  Serious: Yes (Life-Threatening)
  Sender: FDA-Public Use
  Company Number: None

PATIENT
  Age: 42 Year
  Sex: Male
  Weight: 102 kg

DRUGS (4)
  1. PROPOFOL [Suspect]
     Indication: COMA
     Dosage: AVERAGE 140 MCG/KG/MIN CONTINUOUS IV DRIP
     Route: 041
     Dates: start: 20070904, end: 20070906
  2. PHENOBARBITAL TAB [Concomitant]
  3. LEVETIRACETAM [Concomitant]
  4. OXCARBAZEPINE [Concomitant]

REACTIONS (1)
  - PROPOFOL INFUSION SYNDROME [None]
